FAERS Safety Report 5385701-3 (Version None)
Quarter: 2007Q3

REPORT INFORMATION
  Report Type: 
  Country: None (occurrence: None)
  Receive Date: 20070712
  Receipt Date: 20070702
  Transmission Date: 20080115
  Serious: Yes (Hospitalization, Disabling, Other)
  Sender: FDA-Public Use
  Company Number: US-PFIZER INC-2007031811

PATIENT
  Sex: Female
  Weight: 63.5 kg

DRUGS (14)
  1. CELEBREX [Suspect]
     Indication: OSTEOARTHRITIS
     Dates: start: 19990401, end: 20010601
  2. BEXTRA [Suspect]
  3. VIOXX [Suspect]
     Dosage: FREQ:DAILY
     Route: 048
     Dates: start: 20010801
  4. REGLAN [Concomitant]
  5. PRILOSEC [Concomitant]
  6. INDERAL [Concomitant]
  7. COZAAR [Concomitant]
  8. KLOR-CON [Concomitant]
  9. PERCOCET [Concomitant]
  10. MIACALCIN [Concomitant]
  11. LASIX [Concomitant]
  12. VALIUM [Concomitant]
  13. PROCHLORPERAZINE [Concomitant]
  14. ASPIRIN [Concomitant]

REACTIONS (2)
  - CARDIOVASCULAR DISORDER [None]
  - CEREBROVASCULAR ACCIDENT [None]
